FAERS Safety Report 4917773-1 (Version None)
Quarter: 2006Q1

REPORT INFORMATION
  Report Type: 
  Country: None (occurrence: None)
  Receive Date: 20060221
  Receipt Date: 20060210
  Transmission Date: 20060701
  Serious: Yes (Other)
  Sender: FDA-Public Use
  Company Number: PT-SANOFI-SYNTHELABO-A01200601049

PATIENT
  Age: 40 Year
  Sex: Female

DRUGS (1)
  1. STILNOX [Suspect]
     Indication: SLEEP DISORDER
     Dosage: UNK
     Route: 048

REACTIONS (1)
  - LOSS OF CONSCIOUSNESS [None]
